FAERS Safety Report 21133860 (Version 2)
Quarter: 2023Q2

REPORT INFORMATION
  Report Type: Spontaneous
  Country: CA (occurrence: CA)
  Receive Date: 20220726
  Receipt Date: 20230605
  Transmission Date: 20230722
  Serious: Yes (Hospitalization, Other)
  Sender: FDA-Public Use
  Company Number: CA-009507513-2207CAN007435

PATIENT
  Age: 68 Year
  Sex: Female
  Weight: 102 kg

DRUGS (15)
  1. KEYTRUDA [Suspect]
     Active Substance: PEMBROLIZUMAB
     Indication: Lung adenocarcinoma stage IV
     Dosage: 216.0 MILLILITER, ONCE
     Route: 042
  2. PEMETREXED [Suspect]
     Active Substance: PEMETREXED
     Indication: Lung adenocarcinoma stage IV
     Dosage: 792.0 MILLILITER, ONCE; FORMULATION: POWDER FOR SOLUTION
     Route: 042
  3. HYPROMELLOSE, UNSPECIFIED [Concomitant]
     Active Substance: HYPROMELLOSE, UNSPECIFIED
     Indication: Product used for unknown indication
     Dosage: FORMULATION: DROPS
     Route: 065
  4. ASCORBIC ACID [Concomitant]
     Active Substance: ASCORBIC ACID
     Indication: Product used for unknown indication
     Dosage: UNK
     Route: 065
  5. BREO ELLIPTA [Concomitant]
     Active Substance: FLUTICASONE FUROATE\VILANTEROL TRIFENATATE
     Indication: Product used for unknown indication
     Dosage: FORMULATION: INHALATION
     Route: 065
  6. CHOLECALCIFEROL [Concomitant]
     Active Substance: CHOLECALCIFEROL
     Indication: Product used for unknown indication
     Dosage: UNK
     Route: 065
  7. HYDROCHLOROTHIAZIDE [Concomitant]
     Active Substance: HYDROCHLOROTHIAZIDE
     Indication: Product used for unknown indication
     Dosage: UNK
     Route: 065
  8. METOCLOPRAMIDE [Concomitant]
     Active Substance: METOCLOPRAMIDE
     Indication: Product used for unknown indication
     Dosage: UNK
     Route: 065
  9. NABILONE [Concomitant]
     Active Substance: NABILONE
     Indication: Product used for unknown indication
     Dosage: UNK
     Route: 065
  10. PRAVASTATIN SODIUM [Concomitant]
     Active Substance: PRAVASTATIN SODIUM
     Indication: Product used for unknown indication
     Dosage: UNK
     Route: 065
  11. PSYLLIUM HUSK [Concomitant]
     Active Substance: PSYLLIUM HUSK
     Indication: Product used for unknown indication
     Dosage: UNK
     Route: 065
  12. ALBUTEROL [Concomitant]
     Active Substance: ALBUTEROL
     Indication: Product used for unknown indication
     Dosage: FORMULATION: LIQUID INTRAVENOUS
     Route: 065
  13. TELMISARTAN [Concomitant]
     Active Substance: TELMISARTAN
     Indication: Product used for unknown indication
     Dosage: UNK
     Route: 065
  14. UMECLIDINIUM BROMIDE [Concomitant]
     Active Substance: UMECLIDINIUM BROMIDE
     Indication: Product used for unknown indication
     Dosage: UNK
     Route: 065
  15. ZOPICLONE [Concomitant]
     Active Substance: ZOPICLONE
     Indication: Product used for unknown indication
     Dosage: UNK
     Route: 065

REACTIONS (5)
  - Acute kidney injury [Recovering/Resolving]
  - Atrial fibrillation [Recovering/Resolving]
  - Hypokalaemia [Recovering/Resolving]
  - Hypomagnesaemia [Recovering/Resolving]
  - Pancytopenia [Recovering/Resolving]
